FAERS Safety Report 13556126 (Version 2)
Quarter: 2018Q2

REPORT INFORMATION
  Report Type: Spontaneous
  Country: US (occurrence: US)
  Receive Date: 20170517
  Receipt Date: 20180515
  Transmission Date: 20180711
  Serious: No
  Sender: FDA-Public Use
  Company Number: US-SA-2016SA223301

PATIENT
  Age: 68 Year
  Sex: Male
  Weight: 98.88 kg

DRUGS (9)
  1. TOUJEO [Suspect]
     Active Substance: INSULIN GLARGINE
     Indication: TYPE 2 DIABETES MELLITUS
     Dosage: DOSE: 25 TO 37 UNITS
     Route: 051
     Dates: start: 20160717, end: 20170719
  2. TOUJEO [Suspect]
     Active Substance: INSULIN GLARGINE
     Indication: TYPE 2 DIABETES MELLITUS
     Dosage: DOSE: 25 TO 37 UNITS
     Route: 051
     Dates: start: 20170723, end: 20170723
  3. SOLOSTAR [Concomitant]
     Active Substance: DEVICE
     Dates: start: 20170723, end: 20170723
  4. NEXIUM [Concomitant]
     Active Substance: ESOMEPRAZOLE MAGNESIUM
     Indication: BLOOD PRESSURE MEASUREMENT
  5. INSULIN [Concomitant]
     Active Substance: INSULIN NOS
  6. SOLOSTAR [Concomitant]
     Active Substance: DEVICE
     Dates: start: 20160717, end: 20170719
  7. TOUJEO [Suspect]
     Active Substance: INSULIN GLARGINE
     Indication: TYPE 2 DIABETES MELLITUS
     Dosage: DOSE: 25 TO 37 UNITS
     Route: 051
     Dates: start: 20160717, end: 20170719
  8. SOLOSTAR [Concomitant]
     Active Substance: DEVICE
     Dates: start: 20160717, end: 20170719
  9. PLAVIX [Concomitant]
     Active Substance: CLOPIDOGREL BISULFATE
     Indication: BLOOD PRESSURE MEASUREMENT

REACTIONS (4)
  - Oedema peripheral [Unknown]
  - Blood creatinine increased [Unknown]
  - Blood glucose fluctuation [Unknown]
  - Product use issue [Unknown]

NARRATIVE: CASE EVENT DATE: 20160722
